FAERS Safety Report 20739197 (Version 1)
Quarter: 2022Q2

REPORT INFORMATION
  Report Type: Spontaneous
  Country: DE (occurrence: DE)
  Receive Date: 20220422
  Receipt Date: 20220422
  Transmission Date: 20220720
  Serious: Yes (Other)
  Sender: FDA-Public Use
  Company Number: DE-NOVARTISPH-NVSC2022DE091803

PATIENT
  Age: 67 Year
  Sex: Female

DRUGS (9)
  1. DEXAMETHASONE\NEOMYCIN SULFATE\POLYMYXIN B SULFATE [Suspect]
     Active Substance: DEXAMETHASONE\NEOMYCIN SULFATE\POLYMYXIN B SULFATE
     Indication: Postoperative care
     Dosage: UNK (1ST WEEK 5X DAILY, THEN 1 WEEK 4X DAILY AND NOW 3 X DAILY)
     Route: 065
  2. CLONIDINE HYDROCHLORIDE [Suspect]
     Active Substance: CLONIDINE HYDROCHLORIDE
     Indication: Product used for unknown indication
     Dosage: 2 DRP, Q12H
     Route: 047
  3. CLONIDINE HYDROCHLORIDE [Suspect]
     Active Substance: CLONIDINE HYDROCHLORIDE
     Dosage: 2 DRP, Q12H (1 DROP IN THE MORNING AND 1 DROP IN THE EVENING + TIM-OPHTAL 0,5% SINE BOTH EYES 1 DROP
     Route: 047
     Dates: start: 202203
  4. CLONIDINE HYDROCHLORIDE [Suspect]
     Active Substance: CLONIDINE HYDROCHLORIDE
     Dosage: 2 DRP, Q12H (2X DAILY ON BOTH EYES (? YEAR AGO))
     Route: 047
  5. TIMOLOL MALEATE [Suspect]
     Active Substance: TIMOLOL MALEATE
     Indication: Angle closure glaucoma
     Dosage: 2 DRP (IN THE EVENING BOTH EYES)
     Route: 047
  6. TIMOLOL MALEATE [Suspect]
     Active Substance: TIMOLOL MALEATE
     Dosage: UNK, QD (IN THE EVENING BOTH EYES)
     Route: 047
  7. BISOPROLOL [Concomitant]
     Active Substance: BISOPROLOL
     Indication: Seasonal allergy
     Dosage: 5 MG, QD
     Route: 065
  8. CROM OPHTAL SINE [Concomitant]
     Indication: Seasonal allergy
     Route: 065
  9. LERCANIDIPINE [Concomitant]
     Active Substance: LERCANIDIPINE
     Indication: Seasonal allergy
     Dosage: UNK, QD (HALF TABLET DAILY)
     Route: 065

REACTIONS (5)
  - Cataract [Unknown]
  - Intraocular pressure increased [Unknown]
  - Rash [Unknown]
  - Dry mouth [Unknown]
  - Product quality issue [Unknown]

NARRATIVE: CASE EVENT DATE: 20220301
